FAERS Safety Report 8812795 (Version 2)
Quarter: 2012Q4

REPORT INFORMATION
  Report Type: 
  Country: FR (occurrence: FR)
  Receive Date: 20120927
  Receipt Date: 20121003
  Transmission Date: 20130627
  Serious: Yes (Other)
  Sender: FDA-Public Use
  Company Number: FR-TEVA-359384ISR

PATIENT
  Sex: Male

DRUGS (1)
  1. COPAXONE [Suspect]
     Dates: start: 2011, end: 2012

REACTIONS (1)
  - Injection site necrosis [Recovered/Resolved with Sequelae]
